FAERS Safety Report 19809794 (Version 1)
Quarter: 2021Q3

REPORT INFORMATION
  Report Type: Spontaneous
  Country: US (occurrence: US)
  Receive Date: 20210909
  Receipt Date: 20210909
  Transmission Date: 20211014
  Serious: Yes (Other)
  Sender: FDA-Public Use
  Company Number: US-ASTRAZENECA-2021A712738

PATIENT
  Age: 741 Month
  Sex: Male
  Weight: 126.1 kg

DRUGS (3)
  1. LAZERTINIB. [Concomitant]
     Active Substance: LAZERTINIB
     Dosage: UNKNOWN
     Route: 065
  2. TAGRISSO [Suspect]
     Active Substance: OSIMERTINIB
     Indication: EGFR GENE MUTATION
     Route: 048
     Dates: start: 20190107, end: 202101
  3. TAGRISSO [Suspect]
     Active Substance: OSIMERTINIB
     Indication: NON-SMALL CELL LUNG CANCER
     Route: 048
     Dates: start: 20190107, end: 202101

REACTIONS (7)
  - Metastases to central nervous system [Not Recovered/Not Resolved]
  - Deep vein thrombosis [Unknown]
  - Neoplasm progression [Not Recovered/Not Resolved]
  - Small cell lung cancer [Not Recovered/Not Resolved]
  - Pulmonary embolism [Unknown]
  - Lung disorder [Not Recovered/Not Resolved]
  - Drug ineffective [Not Recovered/Not Resolved]

NARRATIVE: CASE EVENT DATE: 202006
